FAERS Safety Report 10241207 (Version 3)
Quarter: 2014Q3

REPORT INFORMATION
  Report Type: Spontaneous
  Country: US (occurrence: US)
  Receive Date: 20140617
  Receipt Date: 20140806
  Transmission Date: 20150326
  Serious: Yes (Other)
  Sender: FDA-Public Use
  Company Number: US-009507513-1406USA004010

PATIENT
  Age: 17 Year
  Sex: Female
  Weight: 102.4 kg

DRUGS (1)
  1. NEXPLANON [Suspect]
     Active Substance: ETONOGESTREL
     Indication: CONTRACEPTION
     Dosage: FREQUENCY: ONE ROD/ THREE YEARS
     Route: 059
     Dates: start: 20140429, end: 20140508

REACTIONS (8)
  - Implant site infection [Recovered/Resolved]
  - Implant site swelling [Unknown]
  - Device expulsion [Recovered/Resolved]
  - Implant site irritation [Unknown]
  - Implant site discharge [Unknown]
  - Implant site cellulitis [Unknown]
  - Device dislocation [Recovered/Resolved]
  - Implant site erythema [Unknown]

NARRATIVE: CASE EVENT DATE: 2014
